FAERS Safety Report 16936707 (Version 8)
Quarter: 2020Q3

REPORT INFORMATION
  Report Type: Spontaneous
  Country: US (occurrence: US)
  Receive Date: 20191018
  Receipt Date: 20200923
  Transmission Date: 20201102
  Serious: Yes (Life-Threatening, Hospitalization, Disabling, Other)
  Sender: FDA-Public Use
  Company Number: US-BIOMARINAP-US-2019-126351

PATIENT
  Age: 36 Year
  Sex: Female

DRUGS (3)
  1. HUMIRA [Suspect]
     Active Substance: ADALIMUMAB
     Indication: MUCOPOLYSACCHARIDOSIS I
     Route: 065
  2. ALDURAZYME [Suspect]
     Active Substance: LARONIDASE
     Indication: MUCOPOLYSACCHARIDOSIS I
     Dosage: UNK, QW
     Route: 042
     Dates: start: 20050517
  3. ALDURAZYME [Suspect]
     Active Substance: LARONIDASE
     Dosage: 37.70 MILLIGRAM
     Route: 042
     Dates: start: 20130110

REACTIONS (12)
  - Abdominal discomfort [Not Recovered/Not Resolved]
  - Central nervous system infection [Unknown]
  - Gastrointestinal stoma complication [Unknown]
  - Hernia repair [Unknown]
  - Headache [Not Recovered/Not Resolved]
  - Colorectal cancer metastatic [Not Recovered/Not Resolved]
  - Pulmonary mass [Unknown]
  - Shunt malfunction [Not Recovered/Not Resolved]
  - Metastases to lung [Not Recovered/Not Resolved]
  - Condition aggravated [Not Recovered/Not Resolved]
  - Malignant neoplasm of unknown primary site [Not Recovered/Not Resolved]
  - Vomiting [Not Recovered/Not Resolved]

NARRATIVE: CASE EVENT DATE: 2018
